FAERS Safety Report 7990618-1 (Version None)
Quarter: 2011Q4

REPORT INFORMATION
  Report Type: 
  Country: None (occurrence: None)
  Receive Date: 20111219
  Receipt Date: 20110805
  Transmission Date: 20120403
  Serious: No
  Sender: FDA-Public Use
  Company Number: US-ASTRAZENECA-2011SE44016

PATIENT
  Age: 79 Year
  Sex: Female
  Weight: 76.7 kg

DRUGS (6)
  1. DIAVAN [Concomitant]
     Indication: HYPERTENSION
  2. NIASPAN [Concomitant]
     Indication: HYPERCHOLESTEROLAEMIA
  3. JANUVIA [Concomitant]
     Indication: DIABETES MELLITUS
  4. METFORMIN HCL [Concomitant]
     Indication: DIABETES MELLITUS
  5. CRESTOR [Suspect]
     Indication: HYPERCHOLESTEROLAEMIA
     Route: 048
     Dates: start: 20100101, end: 20110701
  6. SYMBICORT [Concomitant]
     Indication: ASTHMA

REACTIONS (8)
  - BALANCE DISORDER [None]
  - MENTAL IMPAIRMENT [None]
  - PAIN [None]
  - NAUSEA [None]
  - MUSCULOSKELETAL STIFFNESS [None]
  - NECK PAIN [None]
  - PAIN OF SKIN [None]
  - DIZZINESS [None]
